FAERS Safety Report 4543094-5 (Version None)
Quarter: 2004Q4

REPORT INFORMATION
  Report Type: 
  Country: None (occurrence: None)
  Receive Date: 20041229
  Receipt Date: 20041229
  Transmission Date: 20050328
  Serious: Yes (Hospitalization)
  Sender: FDA-Public Use
  Company Number: None

PATIENT
  Age: 70 Year
  Sex: Male
  Weight: 99.2 kg

DRUGS (9)
  1. INDOMETHACIN [Suspect]
     Indication: PAIN IN EXTREMITY
     Dosage: 50 MG PO TID
     Route: 048
  2. METOLAZONE [Concomitant]
  3. MAXZIDE [Concomitant]
  4. DIOVAN [Concomitant]
  5. HYDRALAZINE [Concomitant]
  6. PLAVIX [Concomitant]
  7. ASPIRIN [Concomitant]
  8. TOPROL-XL [Concomitant]
  9. MINOXIDIL [Concomitant]

REACTIONS (6)
  - ABDOMINAL PAIN LOWER [None]
  - DIZZINESS [None]
  - DYSPNOEA [None]
  - GASTRIC ULCER [None]
  - HAEMATEMESIS [None]
  - MELAENA [None]
